FAERS Safety Report 4932184-0 (Version None)
Quarter: 2006Q1

REPORT INFORMATION
  Report Type: 
  Country: None (occurrence: None)
  Receive Date: 20060228
  Receipt Date: 20060214
  Transmission Date: 20060701
  Serious: Yes (Death, Hospitalization, Other)
  Sender: FDA-Public Use
  Company Number: USA0507103527

PATIENT
  Age: 60 Year
  Sex: Female

DRUGS (13)
  1. CYMBALTA [Suspect]
     Dosage: 30 MG,
     Dates: start: 20050501
  2. PREDNISONE TAB [Concomitant]
  3. PROTONIX [Concomitant]
  4. CARAFATE /USA/ (SUCRALFATE) [Concomitant]
  5. ANTIBIOTICS [Concomitant]
  6. PLAVIX [Concomitant]
  7. BACTRIM [Concomitant]
  8. DIFLUCAN [Concomitant]
  9. ZITHROMAX [Concomitant]
  10. LOVENOX [Concomitant]
  11. THEO-DUR [Concomitant]
  12. LORTAB [Concomitant]
  13. MS CONTIN [Concomitant]

REACTIONS (7)
  - CHEST PAIN [None]
  - FATIGUE [None]
  - FLATULENCE [None]
  - GASTRITIS [None]
  - HEPATITIS ACUTE [None]
  - LIVER DISORDER [None]
  - OESOPHAGITIS [None]
